FAERS Safety Report 22354293 (Version 2)
Quarter: 2025Q1

REPORT INFORMATION
  Report Type: Report from Study
  Country: BR (occurrence: BR)
  Receive Date: 20230523
  Receipt Date: 20250107
  Transmission Date: 20250409
  Serious: No
  Sender: TAKEDA
  Company Number: BR-TAKEDA-2023TUS049489

PATIENT
  Age: 19 Year
  Sex: Female

DRUGS (5)
  1. VEDOLIZUMAB [Suspect]
     Active Substance: VEDOLIZUMAB
     Indication: Crohn^s disease
  2. VEDOLIZUMAB [Suspect]
     Active Substance: VEDOLIZUMAB
     Indication: Colitis ulcerative
  3. MESALAMINE [Suspect]
     Active Substance: MESALAMINE
     Indication: Product used for unknown indication
  4. ADALIMUMAB [Concomitant]
     Active Substance: ADALIMUMAB
  5. INFLIXIMAB [Concomitant]
     Active Substance: INFLIXIMAB

REACTIONS (4)
  - No adverse event [Unknown]
  - Product dose omission issue [Unknown]
  - Inappropriate schedule of product administration [Unknown]
  - Product availability issue [Unknown]

NARRATIVE: CASE EVENT DATE: 20220601
